FAERS Safety Report 20752869 (Version 1)
Quarter: 2022Q2

REPORT INFORMATION
  Report Type: Spontaneous
  Country: US (occurrence: None)
  Receive Date: 20220426
  Receipt Date: 20220426
  Transmission Date: 20220721
  Serious: No
  Sender: FDA-Public Use
  Company Number: US-ROCHE-2922391

PATIENT
  Sex: Male

DRUGS (2)
  1. ESBRIET [Suspect]
     Active Substance: PIRFENIDONE
     Indication: Pulmonary fibrosis
     Dosage: TAKE 1 TABLET BY MOUTH 3 TIMES A DAY FOR 7 DAYS, THEN TAKE 2 TABLETS BY MOUTH 3 TIMES A DAY FOR 7 DA
     Route: 048
     Dates: start: 20210831
  2. ESBRIET [Suspect]
     Active Substance: PIRFENIDONE
     Route: 048
     Dates: start: 20210828

REACTIONS (3)
  - Depression [Unknown]
  - Diarrhoea [Recovered/Resolved]
  - Abdominal discomfort [Unknown]
